FAERS Safety Report 9799516 (Version 1)
Quarter: 2013Q4

REPORT INFORMATION
  Report Type: Spontaneous
  Country: US (occurrence: None)
  Receive Date: 20131231
  Receipt Date: 20131231
  Transmission Date: 20140711
  Serious: Yes (Other)
  Sender: FDA-Public Use
  Company Number: 2013P1022148

PATIENT
  Age: 24 Year
  Sex: Female

DRUGS (6)
  1. FENTANYL [Suspect]
     Indication: GENERAL ANAESTHESIA
     Dosage: 50 UG
     Dates: start: 20111102, end: 20111102
  2. PROPOFOL [Suspect]
     Indication: GENERAL ANAESTHESIA
     Dosage: 100 MG
     Dates: start: 20111102, end: 20111102
  3. ROCURONIUM [Suspect]
     Indication: GENERAL ANAESTHESIA
     Dosage: 50UG
     Dates: start: 20111102, end: 20111102
  4. DEXAMETHASONE [Concomitant]
  5. CEFAZOLIN [Concomitant]
  6. LIDOCAINE [Concomitant]

REACTIONS (2)
  - Hypotension [None]
  - Stress cardiomyopathy [None]
